FAERS Safety Report 12581318 (Version 1)
Quarter: 2016Q3

REPORT INFORMATION
  Report Type: Spontaneous
  Country: DE (occurrence: DE)
  Receive Date: 20160721
  Receipt Date: 20160721
  Transmission Date: 20161109
  Serious: Yes (Other)
  Sender: FDA-Public Use
  Company Number: ALCN2016DE004977

PATIENT
  Age: 4 Year
  Sex: Male

DRUGS (2)
  1. TAFLOTAN [Concomitant]
     Active Substance: TAFLUPROST
     Indication: POSTOPERATIVE CARE
     Dosage: UNK
     Route: 047
     Dates: end: 201606
  2. AZOPT [Suspect]
     Active Substance: BRINZOLAMIDE
     Indication: POSTOPERATIVE CARE
     Dosage: UNK
     Route: 047
     Dates: end: 20160711

REACTIONS (1)
  - Visual acuity reduced [Unknown]

NARRATIVE: CASE EVENT DATE: 20160713
